FAERS Safety Report 16044643 (Version 1)
Quarter: 2019Q1

REPORT INFORMATION
  Report Type: Spontaneous
  Country: CA (occurrence: CA)
  Receive Date: 20190306
  Receipt Date: 20190306
  Transmission Date: 20190418
  Serious: Yes (Other)
  Sender: FDA-Public Use
  Company Number: CA-MYLANLABS-2019M1020229

PATIENT
  Age: 65 Year
  Sex: Female

DRUGS (28)
  1. OMALIZUMAB. [Suspect]
     Active Substance: OMALIZUMAB
     Dosage: 375 MILLIGRAM
     Route: 058
  2. BILASTINE [Concomitant]
     Active Substance: BILASTINE
     Indication: PRODUCT USED FOR UNKNOWN INDICATION
     Dosage: 1 DOSAGE FORM, BID
     Route: 048
  3. OMNARIS [Concomitant]
     Active Substance: CICLESONIDE
     Indication: HYPERSENSITIVITY
     Dosage: 4 DOSAGE FORM, QD
  4. TAPAZOLE [Concomitant]
     Active Substance: METHIMAZOLE
     Indication: THYROID DISORDER
     Dosage: 1 DOSAGE FORM, BID
     Route: 048
  5. ZANTAC [Concomitant]
     Active Substance: RANITIDINE HYDROCHLORIDE
     Indication: PRODUCT USED FOR UNKNOWN INDICATION
     Dosage: 1 DOSAGE FORM, QD
     Route: 048
  6. BIAXIN [Suspect]
     Active Substance: CLARITHROMYCIN
     Indication: COUGH
  7. LEVOFLOXACIN. [Suspect]
     Active Substance: LEVOFLOXACIN
     Indication: PRODUCTIVE COUGH
     Dosage: UNK
     Route: 065
  8. PREDNISONE. [Suspect]
     Active Substance: PREDNISONE
     Indication: ASTHMA
     Dosage: UNK UNK, BID
     Route: 065
  9. SPIRIVA [Concomitant]
     Active Substance: TIOTROPIUM BROMIDE MONOHYDRATE
     Indication: ASTHMA
     Dosage: 1 DOSAGE FORM, QD
  10. BIAXIN [Suspect]
     Active Substance: CLARITHROMYCIN
     Indication: SPUTUM DISCOLOURED
     Dosage: 2 DOSAGE FORM, QD
     Route: 065
  11. OMALIZUMAB. [Suspect]
     Active Substance: OMALIZUMAB
     Indication: ASTHMA
     Dosage: UNK
     Route: 058
  12. OMALIZUMAB. [Suspect]
     Active Substance: OMALIZUMAB
     Dosage: 375 MILLIGRAM, Q2W
     Route: 058
  13. VENTOLIN [Concomitant]
     Active Substance: ALBUTEROL SULFATE
     Indication: ASTHMA
     Dosage: 2 DOSAGE FORMS
  14. PREDNISONE. [Suspect]
     Active Substance: PREDNISONE
     Indication: BLOOD IMMUNOGLOBULIN E INCREASED
     Dosage: 20 MILLIGRAM, QD
     Route: 065
  15. ADVAIR HFA [Concomitant]
     Active Substance: FLUTICASONE PROPIONATE\SALMETEROL XINAFOATE
     Indication: PRODUCT USED FOR UNKNOWN INDICATION
  16. SINGULAIR [Concomitant]
     Active Substance: MONTELUKAST SODIUM
     Indication: PRODUCT USED FOR UNKNOWN INDICATION
     Dosage: 1 DOSAGE FORM, QD
     Route: 048
  17. BIAXIN [Suspect]
     Active Substance: CLARITHROMYCIN
     Indication: BRONCHITIS
  18. VORICONAZOLE. [Suspect]
     Active Substance: VORICONAZOLE
     Indication: BRONCHOPULMONARY ASPERGILLOSIS ALLERGIC
     Dosage: UNK
     Route: 065
  19. ARTHROTEC [Concomitant]
     Active Substance: DICLOFENAC SODIUM\MISOPROSTOL
     Indication: PRODUCT USED FOR UNKNOWN INDICATION
  20. DESOXIMETASONE. [Concomitant]
     Active Substance: DESOXIMETASONE
     Indication: PRODUCT USED FOR UNKNOWN INDICATION
  21. BIAXIN [Suspect]
     Active Substance: CLARITHROMYCIN
     Indication: PYREXIA
     Dosage: 1 EVERY 1 DAY
     Route: 065
  22. BIAXIN [Suspect]
     Active Substance: CLARITHROMYCIN
     Indication: PRODUCTIVE COUGH
  23. LEVOFLOXACIN. [Suspect]
     Active Substance: LEVOFLOXACIN
     Dosage: 750 MILLIGRAM, QD
     Route: 065
  24. PREDNISONE. [Suspect]
     Active Substance: PREDNISONE
     Indication: BRONCHOPULMONARY ASPERGILLOSIS ALLERGIC
     Dosage: 10 MILLIGRAM, QD
     Route: 065
  25. VALSARTAN. [Suspect]
     Active Substance: VALSARTAN
     Indication: HYPERTENSION
     Dosage: 1 DOSAGE FORM, QD
     Route: 048
  26. ESCITALOPRAM OXALATE. [Concomitant]
     Active Substance: ESCITALOPRAM OXALATE
     Indication: PRODUCT USED FOR UNKNOWN INDICATION
     Dosage: 1 DOSAGE FORM, QD
     Route: 048
  27. ZENHALE [Concomitant]
     Active Substance: FORMOTEROL FUMARATE\MOMETASONE FUROATE
     Indication: ASTHMA
     Dosage: 2 DOSAGE FORM, BID
  28. HYDROCHLOROTHIAZIDE. [Concomitant]
     Active Substance: HYDROCHLOROTHIAZIDE
     Indication: PRODUCT USED FOR UNKNOWN INDICATION

REACTIONS (64)
  - Compression fracture [Unknown]
  - Cough [Unknown]
  - Forced vital capacity decreased [Unknown]
  - Fungal infection [Unknown]
  - Memory impairment [Unknown]
  - Nasal congestion [Unknown]
  - Productive cough [Unknown]
  - Asthenia [Unknown]
  - Bronchial secretion retention [Unknown]
  - Diarrhoea [Unknown]
  - Disorganised speech [Unknown]
  - Forced expiratory volume decreased [Unknown]
  - Rales [Unknown]
  - Rhinorrhoea [Unknown]
  - Wound infection [Unknown]
  - Accident [Unknown]
  - Allergy to animal [Unknown]
  - Anxiety [Unknown]
  - Cellulitis [Unknown]
  - Fibromyalgia [Unknown]
  - Pain in extremity [Unknown]
  - Sputum discoloured [Unknown]
  - Wheezing [Unknown]
  - Wound [Unknown]
  - Delirium [Unknown]
  - Dyspnoea [Unknown]
  - Eye injury [Unknown]
  - Fall [Unknown]
  - Gait disturbance [Unknown]
  - Insomnia [Unknown]
  - Nervousness [Unknown]
  - Pyrexia [Unknown]
  - Skin laceration [Unknown]
  - Visual impairment [Unknown]
  - Weight decreased [Unknown]
  - Weight increased [Unknown]
  - Bronchopulmonary aspergillosis allergic [Unknown]
  - Animal scratch [Unknown]
  - Back pain [Unknown]
  - Bronchitis [Unknown]
  - Fatigue [Unknown]
  - Heart rate increased [Unknown]
  - Asthma [Unknown]
  - Cataract [Unknown]
  - Chest discomfort [Unknown]
  - Decreased appetite [Unknown]
  - Functional residual capacity increased [Unknown]
  - Limb injury [Unknown]
  - Muscle atrophy [Unknown]
  - Nausea [Unknown]
  - Oropharyngeal pain [Unknown]
  - Sputum increased [Unknown]
  - Inappropriate schedule of product administration [Unknown]
  - Arthralgia [Unknown]
  - Bone disorder [Unknown]
  - Bone pain [Unknown]
  - Hypertension [Unknown]
  - Influenza [Unknown]
  - Malaise [Unknown]
  - Musculoskeletal discomfort [Unknown]
  - Nasopharyngitis [Unknown]
  - Obstructive airways disorder [Unknown]
  - Respiratory disorder [Unknown]
  - Swelling [Unknown]
